FAERS Safety Report 15149515 (Version 1)
Quarter: 2018Q3

REPORT INFORMATION
  Report Type: Spontaneous
  Country: US (occurrence: US)
  Receive Date: 20180716
  Receipt Date: 20180716
  Transmission Date: 20181010
  Serious: No
  Sender: FDA-Public Use
  Company Number: US-PFIZER INC-2018283765

PATIENT
  Sex: Female

DRUGS (1)
  1. PRISTIQ EXTENDED?RELEASE [Suspect]
     Active Substance: DESVENLAFAXINE SUCCINATE
     Indication: BIPOLAR DISORDER
     Dosage: UNK

REACTIONS (3)
  - Affective disorder [Unknown]
  - Drug dose omission [Unknown]
  - Product use in unapproved indication [Unknown]
